FAERS Safety Report 18860597 (Version 1)
Quarter: 2021Q1

REPORT INFORMATION
  Report Type: Report from Study
  Country: IE (occurrence: IE)
  Receive Date: 20210208
  Receipt Date: 20210208
  Transmission Date: 20210420
  Serious: Yes (Other)
  Sender: FDA-Public Use
  Company Number: IE-PFIZER INC-2021078688

PATIENT
  Age: 74 Year
  Sex: Female

DRUGS (2)
  1. PIPERACILLIN/TAZOBACTAM [Suspect]
     Active Substance: PIPERACILLIN SODIUM\TAZOBACTAM SODIUM
     Dosage: 18 G FREQUENCY: CONTINUOUS INFUSION
     Dates: start: 20201207, end: 202101
  2. PIPERACILLIN/TAZOBACTAM [Suspect]
     Active Substance: PIPERACILLIN SODIUM\TAZOBACTAM SODIUM
     Indication: JOINT PROSTHESIS USER
     Dosage: 18000 MG FREQ:23 H;FREQUENCY: CONTINUOUS INFUSION VIA 23 HOUR INFUSOR. DOSE REINTRODUCED
     Route: 042
     Dates: start: 20210113

REACTIONS (3)
  - Rash pruritic [Not Recovered/Not Resolved]
  - Catheter site rash [Not Recovered/Not Resolved]
  - Rash [Not Recovered/Not Resolved]

NARRATIVE: CASE EVENT DATE: 20210107
